FAERS Safety Report 4336217-4 (Version None)
Quarter: 2004Q2

REPORT INFORMATION
  Report Type: 
  Country: None (occurrence: None)
  Receive Date: 20040406
  Receipt Date: 20040309
  Transmission Date: 20050107
  Serious: Yes (Hospitalization)
  Sender: FDA-Public Use
  Company Number: 2004-BP-02033NB

PATIENT
  Age: 71 Year
  Sex: Female

DRUGS (4)
  1. MIRAPEX [Suspect]
     Indication: PARKINSON'S DISEASE
     Dosage: 0.5 MG (0.125 MG); PO
     Route: 048
     Dates: start: 20040210, end: 20040210
  2. MADOPAR (MADOPAR) (TA) [Concomitant]
  3. FP (TA) [Concomitant]
  4. RIZE (CLOTIAZEPAM   /N/A/) (TA) [Concomitant]

REACTIONS (2)
  - CARDIAC FAILURE [None]
  - STRIDOR [None]
